FAERS Safety Report 14968520 (Version 3)
Quarter: 2019Q2

REPORT INFORMATION
  Report Type: Spontaneous
  Country: CN (occurrence: CN)
  Receive Date: 20180604
  Receipt Date: 20190624
  Transmission Date: 20190711
  Serious: Yes (Hospitalization, Other)
  Sender: FDA-Public Use
  Company Number: CN-PFIZER INC-2018223110

PATIENT
  Age: 84 Year
  Sex: Female

DRUGS (1)
  1. MEPEM [Suspect]
     Active Substance: MEROPENEM
     Indication: DIABETIC FOOT INFECTION
     Dosage: 1 G, 3X/DAY (Q8H)
     Route: 041
     Dates: start: 20180407, end: 20180412

REACTIONS (9)
  - Confusional state [Recovering/Resolving]
  - Sinus tachycardia [Recovering/Resolving]
  - Depressed level of consciousness [Recovering/Resolving]
  - Supraventricular extrasystoles [Recovering/Resolving]
  - Dysphoria [Recovering/Resolving]
  - Electrocardiogram ST segment abnormal [Unknown]
  - Lacunar infarction [Recovering/Resolving]
  - Speech disorder [Recovering/Resolving]
  - Mental fatigue [Recovering/Resolving]

NARRATIVE: CASE EVENT DATE: 20180412
